FAERS Safety Report 18706702 (Version 1)
Quarter: 2021Q1

REPORT INFORMATION
  Report Type: Spontaneous
  Country: US (occurrence: US)
  Receive Date: 20210106
  Receipt Date: 20210106
  Transmission Date: 20210419
  Serious: Yes (Hospitalization)
  Sender: FDA-Public Use
  Company Number: None

PATIENT
  Age: 70 Year
  Sex: Female
  Weight: 59.1 kg

DRUGS (13)
  1. BAMLANIVIMAB. [Suspect]
     Active Substance: BAMLANIVIMAB
     Indication: COVID-19
     Dosage: ?          OTHER FREQUENCY:ONCE;?
     Route: 041
     Dates: start: 20201228, end: 20201228
  2. LAMOTRIGINE. [Concomitant]
     Active Substance: LAMOTRIGINE
  3. CARVEDILOL. [Concomitant]
     Active Substance: CARVEDILOL
  4. ROSUVASTATIN. [Concomitant]
     Active Substance: ROSUVASTATIN
  5. FERROUS SULFATE. [Concomitant]
     Active Substance: FERROUS SULFATE
  6. MULTIVITAMIN [Concomitant]
     Active Substance: VITAMINS
  7. NASACORT [Concomitant]
     Active Substance: TRIAMCINOLONE ACETONIDE
  8. FELODIPINE. [Concomitant]
     Active Substance: FELODIPINE
  9. LINAGLIPTIN [Concomitant]
     Active Substance: LINAGLIPTIN
  10. VALSARTAN. [Concomitant]
     Active Substance: VALSARTAN
  11. VITAMIN B12 [Concomitant]
     Active Substance: CYANOCOBALAMIN
  12. TOUJEO [Concomitant]
     Active Substance: INSULIN GLARGINE
  13. ASPIRIN. [Concomitant]
     Active Substance: ASPIRIN

REACTIONS (5)
  - Confusional state [None]
  - Gait disturbance [None]
  - Feeling abnormal [None]
  - Blood glucose increased [None]
  - Dizziness [None]

NARRATIVE: CASE EVENT DATE: 20201229
